FAERS Safety Report 8795616 (Version 1)
Quarter: 2012Q4

REPORT INFORMATION
  Report Type: 
  Country: DE (occurrence: DE)
  Receive Date: 20120919
  Receipt Date: 20120919
  Transmission Date: 20130627
  Serious: Yes (Other)
  Sender: FDA-Public Use
  Company Number: DE-B.I. PHARMACEUTICALS,INC./RIDGEFIELD-2012-EU-04565GD

PATIENT
  Age: 5 Month

DRUGS (4)
  1. NEVIRAPINE [Suspect]
     Indication: HIV INFECTION
     Dosage: 400 mg/mE2
  2. LOPINAVIR W/RITONAVIR [Suspect]
     Indication: HIV INFECTION
     Dosage: 600 mg/mE2
  3. LAMIVUDINE [Suspect]
     Indication: HIV INFECTION
     Dosage: 8 mg/kg
  4. ZIDOVUDINE [Suspect]
     Indication: HIV INFECTION
     Dosage: 360 mg/mE2

REACTIONS (9)
  - Immune reconstitution inflammatory syndrome [Unknown]
  - Nephrotic syndrome [Recovered/Resolved]
  - Oedema [Recovered/Resolved]
  - Proteinuria [Recovered/Resolved]
  - Hypertriglyceridaemia [Recovered/Resolved]
  - Hypoalbuminaemia [Recovered/Resolved]
  - Hypertension [Recovered/Resolved]
  - Hypercholesterolaemia [Recovered/Resolved]
  - Pyrexia [Recovered/Resolved]
